FAERS Safety Report 23541048 (Version 2)
Quarter: 2024Q2

REPORT INFORMATION
  Report Type: Spontaneous
  Country: US (occurrence: US)
  Receive Date: 20240219
  Receipt Date: 20240517
  Transmission Date: 20240716
  Serious: No
  Sender: FDA-Public Use
  Company Number: US-Stemline Therapeutics, Inc.-2024ST000068

PATIENT
  Age: 75 Year
  Sex: Female

DRUGS (1)
  1. ORSERDU [Suspect]
     Active Substance: ELACESTRANT
     Indication: Product used for unknown indication
     Dosage: 345 MG, ONCE DAILY, ORAL
     Route: 048
     Dates: start: 20230917

REACTIONS (5)
  - Product use complaint [Unknown]
  - Illness [Unknown]
  - Constipation [Unknown]
  - Vomiting [Recovering/Resolving]
  - Nausea [Unknown]
